FAERS Safety Report 24624835 (Version 1)
Quarter: 2024Q4

REPORT INFORMATION
  Report Type: Spontaneous
  Country: US (occurrence: US)
  Receive Date: 20241115
  Receipt Date: 20241115
  Transmission Date: 20250115
  Serious: No
  Sender: TELIX PHARMACEUTICALS
  Company Number: US-TLX-2024000199

PATIENT
  Sex: Male

DRUGS (1)
  1. GOZETOTIDE [Suspect]
     Active Substance: GOZETOTIDE
     Indication: Imaging procedure
     Route: 040

REACTIONS (1)
  - Hypersensitivity [Unknown]
